FAERS Safety Report 21097977 (Version 1)
Quarter: 2022Q3

REPORT INFORMATION
  Report Type: Spontaneous
  Country: US (occurrence: US)
  Receive Date: 20220719
  Receipt Date: 20220719
  Transmission Date: 20221027
  Serious: Yes (Other)
  Sender: FDA-Public Use
  Company Number: US-SUN PHARMACEUTICAL INDUSTRIES LTD-2022R1-344809

PATIENT
  Age: 20 Year
  Sex: Female

DRUGS (5)
  1. SERTRALINE [Suspect]
     Active Substance: SERTRALINE HYDROCHLORIDE
     Indication: Anxiety
     Dosage: 25 MILLIGRAM, DAILY
     Route: 065
  2. SERTRALINE [Suspect]
     Active Substance: SERTRALINE HYDROCHLORIDE
     Indication: Depression
  3. norethindrone acetate-ethinyl estradiol [Concomitant]
     Dosage: 20 MICROGRAM, DAILY
     Route: 065
  4. norethindrone acetate-ethinyl estradiol [Concomitant]
     Indication: Contraception
  5. norethindrone acetate-ethinyl estradiol [Concomitant]

REACTIONS (1)
  - Postural orthostatic tachycardia syndrome [Unknown]
